FAERS Safety Report 12707174 (Version 2)
Quarter: 2016Q4

REPORT INFORMATION
  Report Type: Spontaneous
  Country: JP (occurrence: JP)
  Receive Date: 20160901
  Receipt Date: 20161021
  Transmission Date: 20170207
  Serious: Yes (Hospitalization)
  Sender: FDA-Public Use
  Company Number: JP-BAYER-2015-278660

PATIENT
  Age: 70 Year
  Sex: Male
  Weight: 93 kg

DRUGS (11)
  1. WARFARIN [Concomitant]
     Active Substance: WARFARIN
     Route: 048
  2. MERISLON [Concomitant]
     Active Substance: BETAHISTINE MESILATE
     Route: 048
  3. PERSANTIN [Concomitant]
     Active Substance: DIPYRIDAMOLE
  4. VASOLAN [Concomitant]
     Active Substance: VERAPAMIL HYDROCHLORIDE
  5. TANATRIL [Concomitant]
     Active Substance: IMIDAPRIL
     Route: 048
  6. NEXAVAR [Suspect]
     Active Substance: SORAFENIB
     Indication: HEPATOCELLULAR CARCINOMA
     Dosage: 400 MG, QD
     Route: 048
     Dates: start: 20150507, end: 20150513
  7. NEXAVAR [Suspect]
     Active Substance: SORAFENIB
     Indication: HEPATOCELLULAR CARCINOMA
     Dosage: 600 MG DAILY DOSE
     Route: 048
     Dates: start: 20150514, end: 20150530
  8. NEXAVAR [Suspect]
     Active Substance: SORAFENIB
     Indication: HEPATOCELLULAR CARCINOMA
     Dosage: 400 MG, QOD
     Route: 048
     Dates: start: 20150604, end: 20160815
  9. BARACLUDE [Concomitant]
     Active Substance: ENTECAVIR
     Route: 048
  10. PARIET [Concomitant]
     Active Substance: RABEPRAZOLE SODIUM
     Route: 048
  11. URIEF [Concomitant]
     Active Substance: SILODOSIN
     Route: 048

REACTIONS (9)
  - Palmar-plantar erythrodysaesthesia syndrome [Recovered/Resolved]
  - Cardiac failure [Recovered/Resolved]
  - Tachycardia [Recovered/Resolved]
  - Bundle branch block left [Recovered/Resolved]
  - Dyspnoea at rest [Recovered/Resolved]
  - Malaise [Recovering/Resolving]
  - Alopecia [Recovered/Resolved]
  - Palmar-plantar erythrodysaesthesia syndrome [Recovering/Resolving]
  - Wheezing [Recovered/Resolved]

NARRATIVE: CASE EVENT DATE: 20150513
